FAERS Safety Report 15488537 (Version 1)
Quarter: 2018Q4

REPORT INFORMATION
  Report Type: Spontaneous
  Country: US (occurrence: US)
  Receive Date: 20181003
  Receipt Date: 20181003
  Transmission Date: 20190205
  Serious: Yes (Hospitalization)
  Sender: FDA-Public Use
  Company Number: None

PATIENT
  Sex: Male

DRUGS (4)
  1. HYDROCODONE/ACETAMINOPHEN-- [Concomitant]
  2. ANASTROZOLE. [Suspect]
     Active Substance: ANASTROZOLE
  3. TETRACYCLINE-- [Concomitant]
  4. OMNITROPE [Suspect]
     Active Substance: SOMATROPIN
     Indication: HYPOPITUITARISM
     Route: 058
     Dates: start: 20151204

REACTIONS (2)
  - Lower limb fracture [None]
  - Sports injury [None]
